FAERS Safety Report 14318020 (Version 2)
Quarter: 2018Q1

REPORT INFORMATION
  Report Type: Report from Study
  Country: FR (occurrence: FR)
  Receive Date: 20171222
  Receipt Date: 20180108
  Transmission Date: 20180509
  Serious: Yes (Death, Hospitalization, Other)
  Sender: FDA-Public Use
  Company Number: FR-PFIZER INC-2017539901

PATIENT
  Age: 71 Year
  Sex: Female

DRUGS (9)
  1. FLUOROURACIL. [Suspect]
     Active Substance: FLUOROURACIL
     Indication: PANCREATIC NEUROENDOCRINE TUMOUR
     Dosage: CYCLIC, EVERY 14 DAYS
     Dates: start: 20150213, end: 20151127
  2. LEVOTHYROX [Concomitant]
     Active Substance: LEVOTHYROXINE
     Indication: HYPOTHYROIDISM
     Dosage: UNK
     Route: 048
  3. CALCIUM FOLINATE [Suspect]
     Active Substance: LEUCOVORIN CALCIUM
     Indication: PANCREATIC NEUROENDOCRINE TUMOUR
     Dosage: CYCLIC, EVERY 14 DAYS
     Dates: start: 20150213, end: 20151127
  4. JANUMET [Concomitant]
     Active Substance: METFORMIN HYDROCHLORIDE\SITAGLIPTIN PHOSPHATE
     Indication: DIABETES MELLITUS
     Dosage: UNK
     Route: 048
  5. OXALIPLATIN. [Suspect]
     Active Substance: OXALIPLATIN
     Dosage: UNK
     Dates: end: 20151127
  6. EUPRESSYL /00631801/ [Concomitant]
     Active Substance: URAPIDIL
     Indication: HYPERTENSION
     Dosage: UNK
     Route: 048
  7. OXALIPLATIN. [Suspect]
     Active Substance: OXALIPLATIN
     Indication: PANCREATIC NEUROENDOCRINE TUMOUR
     Dosage: 85 MG/M2, CYCLIC, EVERY 14 DAYS
     Dates: start: 20150213, end: 20150716
  8. INSULIN [Concomitant]
     Active Substance: INSULIN NOS
     Indication: DIABETES MELLITUS
     Dosage: UNK
     Route: 058
  9. CREON [Concomitant]
     Active Substance: PANCRELIPASE AMYLASE\PANCRELIPASE LIPASE\PANCRELIPASE PROTEASE
     Indication: PANCREATIC FAILURE
     Dosage: UNK
     Route: 048

REACTIONS (4)
  - Arthralgia [Not Recovered/Not Resolved]
  - Neuropathy peripheral [Recovering/Resolving]
  - Diarrhoea [Recovered/Resolved]
  - Escherichia bacteraemia [Recovered/Resolved]

NARRATIVE: CASE EVENT DATE: 201507
